FAERS Safety Report 4472440-6 (Version None)
Quarter: 2004Q4

REPORT INFORMATION
  Report Type: 
  Country: None (occurrence: None)
  Receive Date: 20041007
  Receipt Date: 20040927
  Transmission Date: 20050328
  Serious: Yes (Other)
  Sender: FDA-Public Use
  Company Number: 200410738BCC

PATIENT
  Age: 76 Year
  Sex: Female
  Weight: 72.5755 kg

DRUGS (3)
  1. ALEVE [Suspect]
     Indication: BACK PAIN
     Dosage: 220 MG, HS, ORAL
     Route: 048
     Dates: end: 20040212
  2. TIMOPTIC-XE [Concomitant]
  3. MULTI-VITAMIN [Concomitant]

REACTIONS (2)
  - CONDITION AGGRAVATED [None]
  - GLAUCOMA [None]
